FAERS Safety Report 8504844-6 (Version None)
Quarter: 2012Q2

REPORT INFORMATION
  Report Type: 
  Country: None (occurrence: None)
  Receive Date: 20120405
  Receipt Date: 20100928
  Transmission Date: 20120825
  Serious: Yes (Disabling, Other)
  Sender: FDA-Public Use
  Company Number: PHHY2010US56859

PATIENT
  Sex: Female
  Weight: 79.4 kg

DRUGS (6)
  1. LEVOTHYROXINE SODIUM [Concomitant]
  2. NUCYNTA [Concomitant]
  3. FLEXERIL (CYCLOBENZAPRINE HYDROPCHLORIDE) [Concomitant]
  4. CARAFATE [Concomitant]
  5. PEPCID [Concomitant]
  6. RECLAST [Suspect]
     Indication: OSTEOPOROSIS
     Dosage: UNK, INFUSION
     Dates: start: 20100430

REACTIONS (13)
  - DIZZINESS [None]
  - PAIN [None]
  - FATIGUE [None]
  - QUALITY OF LIFE DECREASED [None]
  - BACK PAIN [None]
  - MUSCULOSKELETAL PAIN [None]
  - MYALGIA [None]
  - CHEST PAIN [None]
  - RASH PRURITIC [None]
  - PAIN IN EXTREMITY [None]
  - ARTHRALGIA [None]
  - BONE PAIN [None]
  - BURNING SENSATION [None]
